FAERS Safety Report 6708714-5 (Version None)
Quarter: 2010Q2

REPORT INFORMATION
  Report Type: 
  Country: None (occurrence: None)
  Receive Date: 20100503
  Receipt Date: 20100423
  Transmission Date: 20101027
  Serious: Yes (Hospitalization)
  Sender: FDA-Public Use
  Company Number: US-ABBOTT-10P-163-0640585-00

PATIENT
  Sex: Female
  Weight: 111.23 kg

DRUGS (7)
  1. HUMIRA [Suspect]
     Indication: CROHN'S DISEASE
     Route: 058
     Dates: start: 20090701
  2. TOPROL-XL [Concomitant]
     Indication: HYPERTENSION
     Route: 048
  3. LISINOPRIL [Concomitant]
     Indication: HYPERTENSION
     Route: 048
  4. VITAMIN B-12 [Concomitant]
     Indication: VITAMIN SUPPLEMENTATION
  5. FOLIC ACID [Concomitant]
     Indication: VITAMIN SUPPLEMENTATION
  6. ZYRTEC [Concomitant]
     Indication: HYPERSENSITIVITY
  7. ENTOCORT EC [Concomitant]
     Indication: CROHN'S DISEASE
     Dates: start: 20070101, end: 20100401

REACTIONS (15)
  - ABDOMINAL PAIN [None]
  - ARTHRALGIA [None]
  - ASTHENIA [None]
  - BLOOD GLUCOSE INCREASED [None]
  - BLOOD POTASSIUM DECREASED [None]
  - BLOOD PRESSURE INCREASED [None]
  - CONSTIPATION [None]
  - CROHN'S DISEASE [None]
  - DEHYDRATION [None]
  - DRUG INEFFECTIVE [None]
  - HEADACHE [None]
  - ILEITIS [None]
  - INCREASED TENDENCY TO BRUISE [None]
  - NAUSEA [None]
  - SKIN ATROPHY [None]
